FAERS Safety Report 6470003-4 (Version None)
Quarter: 2009Q4

REPORT INFORMATION
  Report Type: 
  Country: None (occurrence: None)
  Receive Date: 20091203
  Receipt Date: 20091127
  Transmission Date: 20100525
  Serious: Yes (Life-Threatening)
  Sender: FDA-Public Use
  Company Number: JP-ASTRAZENECA-2009SE22274

PATIENT
  Age: 24918 Day
  Sex: Male

DRUGS (7)
  1. MEROPEN [Suspect]
     Indication: PERITONITIS
     Route: 042
     Dates: start: 20091015, end: 20091019
  2. PROPOFOL [Concomitant]
     Route: 042
  3. VANCOMYCIN [Concomitant]
  4. CEFAMEZIN [Concomitant]
     Indication: INFECTION
     Route: 042
     Dates: start: 20091009, end: 20091015
  5. FENTANYL [Concomitant]
  6. MUSCULAX [Concomitant]
     Route: 042
  7. BFLUID [Concomitant]
     Indication: APPETITE DISORDER
     Route: 042
     Dates: start: 20091009, end: 20091017

REACTIONS (1)
  - AGRANULOCYTOSIS [None]
